FAERS Safety Report 8224117-9 (Version None)
Quarter: 2012Q1

REPORT INFORMATION
  Report Type: 
  Country: None (occurrence: None)
  Receive Date: 20120307
  Receipt Date: 20110414
  Transmission Date: 20120608
  Serious: No
  Sender: FDA-Public Use
  Company Number: PHHY2011US32206

PATIENT
  Sex: Male

DRUGS (5)
  1. PROTONIX [Concomitant]
  2. CELEXA [Concomitant]
  3. SUTENT [Suspect]
     Dosage: 10 MG, UNK
     Dates: start: 20110101
  4. FUROSEMIDE [Concomitant]
  5. AFINITOR [Suspect]
     Dosage: 10 MG, QD

REACTIONS (2)
  - RASH [None]
  - LIVER DISORDER [None]
